FAERS Safety Report 8259295-9 (Version None)
Quarter: 2012Q2

REPORT INFORMATION
  Report Type: 
  Country: None (occurrence: None)
  Receive Date: 20120404
  Receipt Date: 20120330
  Transmission Date: 20120825
  Serious: Yes (Death)
  Sender: FDA-Public Use
  Company Number: US-ROXANE LABORATORIES, INC.-2012-RO-00938RO

PATIENT

DRUGS (5)
  1. HYDROCODONE BITARTRATE [Suspect]
  2. METHADONE HCL [Suspect]
  3. ETHANOL [Suspect]
  4. ALPRAZOLAM [Suspect]
  5. TEMAZEPAM [Suspect]

REACTIONS (2)
  - OVERDOSE [None]
  - TOXICITY TO VARIOUS AGENTS [None]
